FAERS Safety Report 25927882 (Version 1)
Quarter: 2025Q4

REPORT INFORMATION
  Report Type: Spontaneous
  Country: US (occurrence: US)
  Receive Date: 20251016
  Receipt Date: 20251016
  Transmission Date: 20260118
  Serious: No
  Sender: BRISTOL-MYERS SQUIBB COMPANY
  Company Number: US-BRISTOL-MYERS SQUIBB COMPANY-2025-140616

PATIENT
  Age: 77 Year
  Sex: Female
  Weight: 49.9 kg

DRUGS (8)
  1. ORENCIA [Suspect]
     Active Substance: ABATACEPT
     Indication: Rheumatoid arthritis
     Dosage: CODE UNIT: 125 MG/ML
     Dates: start: 20250903
  2. GABAPENTIN [Concomitant]
     Active Substance: GABAPENTIN
     Indication: Product used for unknown indication
  3. CYMBALTA [Concomitant]
     Active Substance: DULOXETINE HYDROCHLORIDE
     Indication: Product used for unknown indication
  4. LYRICA [Concomitant]
     Active Substance: PREGABALIN
     Indication: Product used for unknown indication
  5. DULOXETINE [Concomitant]
     Active Substance: DULOXETINE
     Indication: Product used for unknown indication
  6. MONTELUKAST [Concomitant]
     Active Substance: MONTELUKAST
     Indication: Product used for unknown indication
  7. TRAMADOL [Concomitant]
     Active Substance: TRAMADOL
     Indication: Pain
     Dosage: PRN (1-2 TABLETS A DAY)
  8. ELIQUIS [Concomitant]
     Active Substance: APIXABAN
     Indication: Product used for unknown indication

REACTIONS (2)
  - Wrong technique in device usage process [Unknown]
  - Device operational issue [Unknown]

NARRATIVE: CASE EVENT DATE: 20251013
